FAERS Safety Report 9638612 (Version 1)
Quarter: 2013Q4

REPORT INFORMATION
  Report Type: Spontaneous
  Country: US (occurrence: None)
  Receive Date: 20131018
  Receipt Date: 20131018
  Transmission Date: 20140711
  Serious: Yes (Hospitalization)
  Sender: FDA-Public Use
  Company Number: US-ZYDUS-002322

PATIENT
  Sex: Male

DRUGS (3)
  1. RIBAVIRIN [Suspect]
     Dates: start: 200906
  2. BOCEPREVIR [Suspect]
  3. PEGINTERFERON ALFA-2B [Suspect]
     Dates: start: 200906

REACTIONS (9)
  - Syncope [None]
  - Anaemia [None]
  - Liver disorder [None]
  - Liver transplant [None]
  - Hepatitis C [None]
  - Post procedural complication [None]
  - Hepatitis chronic active [None]
  - Fibrosis [None]
  - Hepatic cirrhosis [None]
